FAERS Safety Report 15764689 (Version 1)
Quarter: 2018Q4

REPORT INFORMATION
  Report Type: Spontaneous
  Country: US (occurrence: US)
  Receive Date: 20181218
  Receipt Date: 20181218
  Transmission Date: 20190205
  Serious: Yes (Hospitalization)
  Sender: FDA-Public Use
  Company Number: None

PATIENT

DRUGS (2)
  1. DOBUTAMINE HCL DOBUTAMINE PREMIX [Suspect]
     Active Substance: DOBUTAMINE HYDROCHLORIDE
     Dosage: ?          OTHER STRENGTH:4000 UG/ML;?
     Route: 042
  2. DOBUTAMINE HCL DOBUTAMINE PREMIX [Suspect]
     Active Substance: DOBUTAMINE HYDROCHLORIDE
     Dosage: ?          OTHER STRENGTH:2000 UG/ML;?
     Route: 042

REACTIONS (2)
  - Product packaging issue [None]
  - Wrong product stored [None]
